FAERS Safety Report 5419076-8 (Version None)
Quarter: 2007Q3

REPORT INFORMATION
  Report Type: 
  Country: None (occurrence: None)
  Receive Date: 20070817
  Receipt Date: 20070817
  Transmission Date: 20080115
  Serious: Yes (Hospitalization)
  Sender: FDA-Public Use
  Company Number: None

PATIENT
  Age: 68 Year
  Sex: Male
  Weight: 69.8539 kg

DRUGS (3)
  1. TYGACIL [Suspect]
     Indication: CATHETER RELATED INFECTION
     Dosage: 50 MG Q 12 HOURS IV
     Route: 042
     Dates: start: 20070716, end: 20070802
  2. TYGACIL [Suspect]
  3. TYGACIL [Suspect]

REACTIONS (1)
  - PANCREATITIS [None]
